FAERS Safety Report 4564688-7 (Version None)
Quarter: 2005Q1

REPORT INFORMATION
  Report Type: 
  Country: None (occurrence: None)
  Receive Date: 20050126
  Receipt Date: 20041227
  Transmission Date: 20050727
  Serious: No
  Sender: FDA-Public Use
  Company Number: JP_041205456

PATIENT
  Age: 68 Year
  Sex: Female

DRUGS (5)
  1. EVISTA [Suspect]
     Indication: OSTEOPOROSIS
     Dosage: 60 MG/1 DAY
     Dates: start: 20040911, end: 20041108
  2. CALCITRIOL [Concomitant]
  3. ASPARA-CA (ASPARTATE CALCIUM) [Concomitant]
  4. PLETAL [Concomitant]
  5. ALLOPURINOL [Concomitant]

REACTIONS (1)
  - URTICARIA GENERALISED [None]
